FAERS Safety Report 6994071-6 (Version None)
Quarter: 2010Q3

REPORT INFORMATION
  Report Type: 
  Country: None (occurrence: None)
  Receive Date: 20100917
  Receipt Date: 20070926
  Transmission Date: 20110219
  Serious: Yes (Other)
  Sender: FDA-Public Use
  Company Number: US-ASTRAZENECA-2006UW23329

PATIENT
  Age: 505 Month
  Sex: Female
  Weight: 112.7 kg

DRUGS (10)
  1. SEROQUEL [Suspect]
     Indication: SCHIZOPHRENIA
     Route: 048
     Dates: start: 20040601
  2. SEROQUEL [Suspect]
     Indication: DEPRESSION
     Route: 048
     Dates: start: 20040601
  3. SEROQUEL [Suspect]
     Dosage: 100 MG-200 MG AT BED TIME
     Route: 048
     Dates: start: 20040929
  4. SEROQUEL [Suspect]
     Dosage: 100 MG-200 MG AT BED TIME
     Route: 048
     Dates: start: 20040929
  5. LEXAPRO [Concomitant]
     Dates: start: 20040929
  6. PROPRANOLOL [Concomitant]
     Dates: start: 20040929
  7. LODINE XL [Concomitant]
     Indication: ARTHRALGIA
     Dates: start: 20060208
  8. FERROUS SULFATE [Concomitant]
     Indication: ANAEMIA
     Route: 048
     Dates: start: 20020701
  9. CLIMARA [Concomitant]
     Dosage: STRENGTH- 0.1
     Dates: start: 20060321
  10. DARVOCET-N 100 [Concomitant]
     Dosage: STRENGTH- 100, ONE EVERY 6 HOURS AS REQUIRED
     Route: 048
     Dates: start: 20020701

REACTIONS (2)
  - DIABETES MELLITUS INADEQUATE CONTROL [None]
  - TYPE 2 DIABETES MELLITUS [None]
